FAERS Safety Report 22311841 (Version 1)
Quarter: 2023Q2

REPORT INFORMATION
  Report Type: Spontaneous
  Country: CN (occurrence: CN)
  Receive Date: 20230512
  Receipt Date: 20230512
  Transmission Date: 20230722
  Serious: Yes (Hospitalization)
  Sender: FDA-Public Use
  Company Number: CN-TERSERA THERAPEUTICS LLC-2023TRS002143

PATIENT

DRUGS (5)
  1. GOSERELIN [Suspect]
     Active Substance: GOSERELIN
     Indication: Adenomyosis
     Dosage: 3.6 MG Q28 DAYS (HYPODERMIC INJECTION (IH))
     Route: 058
  2. GOSERELIN [Suspect]
     Active Substance: GOSERELIN
     Dosage: 3.6 MG Q28 DAYS (HYPODERMIC INJECTION (IH))
     Route: 058
  3. GOSERELIN [Suspect]
     Active Substance: GOSERELIN
     Dosage: 3.6 MG Q28 DAYS (HYPODERMIC INJECTION (IH))
     Route: 058
  4. ZOLADEX [Suspect]
     Active Substance: GOSERELIN ACETATE
     Indication: Adenomyosis
     Dosage: UNK
     Route: 065
  5. IRBESARTAN [Concomitant]
     Active Substance: IRBESARTAN
     Indication: Hypertension
     Dosage: UNK
     Route: 065

REACTIONS (1)
  - Erythema nodosum [Recovered/Resolved]
